FAERS Safety Report 6320224-6 (Version None)
Quarter: 2009Q3

REPORT INFORMATION
  Report Type: 
  Country: None (occurrence: None)
  Receive Date: 20090822
  Receipt Date: 20081027
  Transmission Date: 20100115
  Serious: No
  Sender: FDA-Public Use
  Company Number: US-ABBOTT-08P-163-0484203-00

PATIENT
  Sex: Female

DRUGS (15)
  1. NIASPAN [Suspect]
     Indication: BLOOD CHOLESTEROL INCREASED
     Dosage: AT NIGHT
     Route: 048
     Dates: start: 20080903
  2. OXYCODONE HCL [Concomitant]
     Indication: DRUG USE FOR UNKNOWN INDICATION
  3. PROMETHAZINE [Concomitant]
     Indication: DRUG USE FOR UNKNOWN INDICATION
  4. CYCLOBENZAPRINE [Concomitant]
     Indication: DRUG USE FOR UNKNOWN INDICATION
  5. ROSUVASTATIN [Concomitant]
     Indication: DRUG USE FOR UNKNOWN INDICATION
  6. HYDROCHLOROTHIAZIDE [Concomitant]
     Indication: DRUG USE FOR UNKNOWN INDICATION
  7. DEXTROPROPOXYPHENE [Concomitant]
     Indication: DRUG USE FOR UNKNOWN INDICATION
  8. NAPROXEN SODIUM [Concomitant]
     Indication: DRUG USE FOR UNKNOWN INDICATION
  9. DULOXETINE HYDROCHLORIDE [Concomitant]
     Indication: DRUG USE FOR UNKNOWN INDICATION
  10. LEVOCETIRIZINE DIHYDROCHLORIDE [Concomitant]
     Indication: DRUG USE FOR UNKNOWN INDICATION
  11. RABEPRAZOLE SODIUM [Concomitant]
     Indication: DRUG USE FOR UNKNOWN INDICATION
  12. ATENOLOL [Concomitant]
     Indication: DRUG USE FOR UNKNOWN INDICATION
  13. CLONAZEPAM [Concomitant]
     Indication: DRUG USE FOR UNKNOWN INDICATION
  14. METFORMIN [Concomitant]
     Indication: DRUG USE FOR UNKNOWN INDICATION
  15. AMPHETAMINE SULFATE [Concomitant]
     Indication: DRUG USE FOR UNKNOWN INDICATION

REACTIONS (1)
  - FLUSHING [None]
